FAERS Safety Report 9896720 (Version 1)
Quarter: 2014Q1

REPORT INFORMATION
  Report Type: Spontaneous
  Country: US (occurrence: US)
  Receive Date: 20140213
  Receipt Date: 20140213
  Transmission Date: 20141002
  Serious: No
  Sender: FDA-Public Use
  Company Number: US-BRISTOL-MYERS SQUIBB COMPANY-19159862

PATIENT
  Age: 32 Year
  Sex: Female
  Weight: 52.2 kg

DRUGS (6)
  1. ORENCIA FOR INJ [Suspect]
  2. ENBREL [Concomitant]
     Indication: JUVENILE IDIOPATHIC ARTHRITIS
     Dosage: SOLN FOR INJ IN PRE-FILLED SYRINGE
     Route: 058
     Dates: start: 200708
  3. METHOTREXATE TABS [Concomitant]
  4. FOLIC ACID [Concomitant]
     Dosage: CAPS
  5. TRAMADOL HCL [Concomitant]
     Dosage: TABS
  6. NAPROXEN [Concomitant]
     Dosage: TABS

REACTIONS (2)
  - Paraesthesia [Not Recovered/Not Resolved]
  - Drug ineffective [Unknown]
